FAERS Safety Report 22005791 (Version 1)
Quarter: 2023Q1

REPORT INFORMATION
  Report Type: Spontaneous
  Country: GB (occurrence: GB)
  Receive Date: 20230217
  Receipt Date: 20230217
  Transmission Date: 20230418
  Serious: Yes (Other)
  Sender: FDA-Public Use
  Company Number: GB-BAXTER-2023BAX012683

PATIENT
  Age: 22 Year
  Sex: Female

DRUGS (1)
  1. EXTRANEAL [Suspect]
     Active Substance: CALCIUM CHLORIDE\ICODEXTRIN\MAGNESIUM CHLORIDE\SODIUM CHLORIDE\SODIUM LACTATE
     Indication: Peritoneal dialysis
     Route: 033

REACTIONS (6)
  - Peritoneal dialysis complication [Unknown]
  - Procedural haemorrhage [Unknown]
  - Haemoglobin decreased [Unknown]
  - Heavy menstrual bleeding [Unknown]
  - Bloody peritoneal effluent [Unknown]
  - Asthenia [Unknown]

NARRATIVE: CASE EVENT DATE: 20230207
